FAERS Safety Report 17700201 (Version 1)
Quarter: 2020Q2

REPORT INFORMATION
  Report Type: Spontaneous
  Country: SE (occurrence: SE)
  Receive Date: 20200423
  Receipt Date: 20200423
  Transmission Date: 20200714
  Serious: Yes (Hospitalization)
  Sender: FDA-Public Use
  Company Number: SE-CELGENEUS-SWE-20200309410

PATIENT
  Age: 72 Year
  Sex: Female

DRUGS (2)
  1. ENASIDENIB [Suspect]
     Active Substance: ENASIDENIB
     Dosage: 100 MILLIGRAM
     Route: 048
     Dates: end: 20200208
  2. ENASIDENIB [Suspect]
     Active Substance: ENASIDENIB
     Indication: ACUTE MYELOID LEUKAEMIA
     Dosage: 100 MILLIGRAM
     Route: 048
     Dates: start: 20191126

REACTIONS (2)
  - Disease progression [Not Recovered/Not Resolved]
  - Nausea [Recovering/Resolving]

NARRATIVE: CASE EVENT DATE: 20200124
